FAERS Safety Report 6144694-1 (Version None)
Quarter: 2009Q2

REPORT INFORMATION
  Report Type: 
  Country: None (occurrence: None)
  Receive Date: 20090406
  Receipt Date: 20090327
  Transmission Date: 20091009
  Serious: No
  Sender: FDA-Public Use
  Company Number: B0566679A

PATIENT
  Sex: Male

DRUGS (6)
  1. SERETIDE [Suspect]
     Indication: ASTHMA
     Dosage: 100MCG TWICE PER DAY
     Route: 055
     Dates: start: 20090321, end: 20090322
  2. BENIDIPINE HYDROCHLORIDE [Concomitant]
     Route: 048
  3. ISOSORBIDE DINITRATE [Concomitant]
     Route: 048
  4. NICORANDIL [Concomitant]
     Route: 048
  5. LIMAPROST [Concomitant]
     Route: 048
  6. MYSLEE [Concomitant]
     Route: 048

REACTIONS (1)
  - CHEST PAIN [None]
